FAERS Safety Report 5837164-9 (Version None)
Quarter: 2008Q3

REPORT INFORMATION
  Report Type: 
  Country: None (occurrence: None)
  Receive Date: 20080807
  Receipt Date: 20080801
  Transmission Date: 20090109
  Serious: Yes (Other)
  Sender: FDA-Public Use
  Company Number: US-JNJCH-2008020188

PATIENT
  Age: 20 Year
  Sex: Male
  Weight: 127 kg

DRUGS (1)
  1. VISINE EYE DROPS [Suspect]
     Indication: EYE DISORDER
     Dosage: TEXT:ONE DROP IN EACH EYE ONCE
     Route: 047
     Dates: start: 20080725, end: 20080725

REACTIONS (1)
  - APPLICATION SITE BURN [None]
